FAERS Safety Report 7808217-0 (Version None)
Quarter: 2011Q4

REPORT INFORMATION
  Report Type: 
  Country: None (occurrence: None)
  Receive Date: 20111011
  Receipt Date: 20110921
  Transmission Date: 20120403
  Serious: Yes (Death, Hospitalization)
  Sender: FDA-Public Use
  Company Number: PHEH2011US01548

PATIENT
  Sex: Female

DRUGS (2)
  1. EXJADE [Suspect]
     Dosage: 1000 MG, QD
     Route: 048
  2. SIMVASTATIN [Concomitant]
     Dosage: UNK UKN, UNK

REACTIONS (4)
  - ACUTE MYELOID LEUKAEMIA [None]
  - PYREXIA [None]
  - LIVER FUNCTION TEST ABNORMAL [None]
  - MALAISE [None]
